FAERS Safety Report 8513368 (Version 3)
Quarter: 2014Q1

REPORT INFORMATION
  Report Type: Spontaneous
  Country: JP (occurrence: None)
  Receive Date: 20120406
  Receipt Date: 20140218
  Transmission Date: 20141002
  Serious: Yes (Hospitalization, Other)
  Sender: FDA-Public Use
  Company Number: ADR-2011-10970

PATIENT
  Age: 56 Year
  Sex: Male

DRUGS (1)
  1. GABALON [Suspect]
     Indication: MUSCLE RELAXANT THERAPY
     Dosage: UNK MCG, DAILY, INTRATH
     Route: 037

REACTIONS (4)
  - Implant site swelling [None]
  - Device damage [None]
  - Abdominal distension [None]
  - Device breakage [None]
